FAERS Safety Report 16082633 (Version 1)
Quarter: 2019Q1

REPORT INFORMATION
  Report Type: Report from Study
  Country: DE (occurrence: DE)
  Receive Date: 20190318
  Receipt Date: 20190318
  Transmission Date: 20190418
  Serious: Yes (Hospitalization)
  Sender: FDA-Public Use
  Company Number: DE-TEVA-2019-DE-1024161

PATIENT
  Age: 38 Year
  Sex: Female
  Weight: 82 kg

DRUGS (5)
  1. BERLTHYROX [Concomitant]
     Indication: HYPOTHYROIDISM
     Dosage: 50 MILLIGRAM DAILY;
     Route: 048
     Dates: start: 2000
  2. AQUAPHOR (XIPAMIDE) [Suspect]
     Active Substance: XIPAMIDE
     Indication: HYPERTENSION
     Dosage: 10 MILLIGRAM DAILY;
     Route: 048
     Dates: start: 200308, end: 20031030
  3. TORASEMIDE [Suspect]
     Active Substance: TORSEMIDE
     Indication: HYPERTENSION
     Dosage: 10 MILLIGRAM DAILY; STRENGTH 10MG FORMULATION TABLET.
     Route: 048
     Dates: start: 200308, end: 20031030
  4. TORASEMIDE [Suspect]
     Active Substance: TORSEMIDE
     Indication: HYPERTENSION
     Dosage: STRENGTH AND FORMULATION UNKNOWN.
     Route: 048
     Dates: start: 20031031
  5. DELIX 5 [Suspect]
     Active Substance: RAMIPRIL
     Indication: HYPERTENSION
     Dosage: 5 MILLIGRAM DAILY;
     Route: 048
     Dates: start: 2003

REACTIONS (3)
  - Hypotension [Recovered/Resolved]
  - Dizziness [Recovered/Resolved]
  - Hyperhidrosis [Recovered/Resolved]

NARRATIVE: CASE EVENT DATE: 20031030
